FAERS Safety Report 23107515 (Version 3)
Quarter: 2024Q1

REPORT INFORMATION
  Report Type: Report from Study
  Country: US (occurrence: US)
  Receive Date: 20231026
  Receipt Date: 20240314
  Transmission Date: 20240409
  Serious: Yes (Hospitalization, Other)
  Sender: FDA-Public Use
  Company Number: US-ABBVIE-5387128

PATIENT
  Age: 72 Year
  Sex: Female

DRUGS (3)
  1. IMBRUVICA [Suspect]
     Active Substance: IBRUTINIB
     Indication: Chronic lymphocytic leukaemia
     Route: 048
     Dates: start: 201612
  2. IMBRUVICA [Suspect]
     Active Substance: IBRUTINIB
     Indication: Chronic lymphocytic leukaemia
     Route: 048
     Dates: start: 202002
  3. IMBRUVICA [Suspect]
     Active Substance: IBRUTINIB
     Indication: Chronic lymphocytic leukaemia
     Route: 048
     Dates: start: 201611

REACTIONS (16)
  - Cough [Unknown]
  - Blood pressure fluctuation [Unknown]
  - Weight decreased [Unknown]
  - Localised infection [Unknown]
  - Post procedural swelling [Unknown]
  - Abdominal pain upper [Unknown]
  - Ingrowing nail [Unknown]
  - Pyrexia [Unknown]
  - Sneezing [Unknown]
  - Vomiting [Unknown]
  - Diarrhoea [Unknown]
  - Malaise [Unknown]
  - Mineral metabolism disorder [Unknown]
  - Blood viscosity increased [Unknown]
  - Atrial fibrillation [Unknown]
  - Secretion discharge [Unknown]

NARRATIVE: CASE EVENT DATE: 20231101
